FAERS Safety Report 6937297-X (Version None)
Quarter: 2010Q3

REPORT INFORMATION
  Report Type: 
  Country: None (occurrence: None)
  Receive Date: 20100823
  Receipt Date: 20100818
  Transmission Date: 20110219
  Serious: Yes (Hospitalization)
  Sender: FDA-Public Use
  Company Number: B0670379A

PATIENT
  Age: 79 Year
  Sex: Female

DRUGS (11)
  1. AUGMENTIN '125' [Suspect]
     Route: 065
     Dates: start: 20100327, end: 20100327
  2. SUFENTA PRESERVATIVE FREE [Suspect]
     Route: 065
     Dates: start: 20100327, end: 20100327
  3. HYPNOVEL [Suspect]
     Route: 065
     Dates: start: 20100327, end: 20100327
  4. KETAMINE HCL [Suspect]
     Route: 065
     Dates: start: 20100327, end: 20100327
  5. DIPRIVAN [Suspect]
     Route: 065
     Dates: start: 20100327, end: 20100327
  6. ATENOLOL [Concomitant]
     Route: 065
  7. CYCLOTHIAZIDE [Concomitant]
     Route: 065
  8. RILMENIDINE [Concomitant]
     Route: 065
  9. GLIBENCLAMIDE [Concomitant]
     Route: 065
  10. VASTEN [Concomitant]
     Route: 065
  11. LORAZEPAM [Concomitant]
     Route: 065
     Dates: start: 20100327

REACTIONS (11)
  - ANAPHYLACTIC SHOCK [None]
  - BRADYCARDIA [None]
  - CYANOSIS [None]
  - GENERALISED ERYTHEMA [None]
  - HISTAMINE LEVEL INCREASED [None]
  - HYPOTENSION [None]
  - OXYGEN SATURATION DECREASED [None]
  - PAINFUL RESPIRATION [None]
  - TACHYCARDIA [None]
  - TRYPTASE INCREASED [None]
  - TYPE I HYPERSENSITIVITY [None]
